FAERS Safety Report 5050629-5 (Version None)
Quarter: 2006Q3

REPORT INFORMATION
  Report Type: 
  Country: None (occurrence: None)
  Receive Date: 20060710
  Receipt Date: 20060627
  Transmission Date: 20061208
  Serious: Yes (Other)
  Sender: FDA-Public Use
  Company Number: 14317

PATIENT
  Age: 73 Year
  Sex: Female

DRUGS (6)
  1. CARBOPLATIN [Suspect]
     Indication: OVARIAN EPITHELIAL CANCER
  2. NICARDIPINE [Concomitant]
  3. PRAZEPAM [Concomitant]
  4. MOCLOBEMIDE [Concomitant]
  5. PRAZEPAM [Concomitant]
  6. BENZAFIBRATE [Concomitant]

REACTIONS (4)
  - DRUG INEFFECTIVE [None]
  - FASCIITIS [None]
  - MUSCULOSKELETAL STIFFNESS [None]
  - POLYARTHRITIS [None]
